FAERS Safety Report 8260806-8 (Version None)
Quarter: 2012Q1

REPORT INFORMATION
  Report Type: 
  Country: None (occurrence: None)
  Receive Date: 20120327
  Receipt Date: 20090401
  Transmission Date: 20120608
  Serious: Yes (Hospitalization)
  Sender: FDA-Public Use
  Company Number: PHEH2009US03099

PATIENT

DRUGS (9)
  1. ATENOLOL [Concomitant]
  2. KLOR-CON [Concomitant]
  3. LOVASTATIN [Concomitant]
  4. REFRESH PM (PARAFFIN, LIQUID, WHITE SOFT PARAFFIN, WOOL ALCOHOLS) [Concomitant]
  5. HYDROCHLOROTHIAZIDE [Concomitant]
  6. HYZAAR [Concomitant]
  7. COUMADIN [Concomitant]
  8. GLEEVEC [Suspect]
     Indication: GASTROINTESTINAL STROMAL TUMOUR
     Dosage: 400 MG, QD, ORAL
     Route: 048
     Dates: start: 20090214, end: 20090306
  9. MIRALAX [Concomitant]

REACTIONS (10)
  - BLOOD UREA INCREASED [None]
  - SWELLING FACE [None]
  - CARDIAC FAILURE CONGESTIVE [None]
  - RASH [None]
  - DYSPNOEA [None]
  - URTICARIA [None]
  - FLUID RETENTION [None]
  - BLOOD CREATININE INCREASED [None]
  - NAUSEA [None]
  - FATIGUE [None]
